FAERS Safety Report 12898712 (Version 1)
Quarter: 2016Q4

REPORT INFORMATION
  Report Type: Report from Study
  Country: CA (occurrence: CA)
  Receive Date: 20161101
  Receipt Date: 20161101
  Transmission Date: 20170207
  Serious: Yes (Hospitalization, Other)
  Sender: FDA-Public Use
  Company Number: CA-AMGEN-CANSL2016149982

PATIENT
  Age: 75 Year
  Sex: Female

DRUGS (15)
  1. VITAMIN D [Concomitant]
     Active Substance: CHOLECALCIFEROL
  2. LASIX [Concomitant]
     Active Substance: FUROSEMIDE
  3. ELAVIL [Concomitant]
     Active Substance: AMITRIPTYLINE HYDROCHLORIDE
  4. ASPIRIN. [Concomitant]
     Active Substance: ASPIRIN
  5. ALDACTONE [Concomitant]
     Active Substance: SPIRONOLACTONE
  6. BISOPROLOL [Concomitant]
     Active Substance: BISOPROLOL
  7. PROLIA [Suspect]
     Active Substance: DENOSUMAB
     Indication: PRODUCT USED FOR UNKNOWN INDICATION
     Dosage: UNK
     Route: 065
     Dates: start: 20150414
  8. CALCIUM [Concomitant]
     Active Substance: CALCIUM
  9. DESYREL [Concomitant]
     Active Substance: TRAZODONE HYDROCHLORIDE
  10. FEMARA [Concomitant]
     Active Substance: LETROZOLE
  11. DIOVAN [Concomitant]
     Active Substance: VALSARTAN
  12. EFFEXOR [Concomitant]
     Active Substance: VENLAFAXINE HYDROCHLORIDE
  13. ATORVASTATIN [Concomitant]
     Active Substance: ATORVASTATIN
  14. DOCUSATE SODIUM. [Concomitant]
     Active Substance: DOCUSATE SODIUM
  15. OMEPRAZOLE. [Concomitant]
     Active Substance: OMEPRAZOLE

REACTIONS (3)
  - Mitral valve disease [Unknown]
  - Left ventricular failure [Unknown]
  - Acute pulmonary oedema [Unknown]
